FAERS Safety Report 10250627 (Version 3)
Quarter: 2014Q3

REPORT INFORMATION
  Report Type: Spontaneous
  Country: US (occurrence: US)
  Receive Date: 20140620
  Receipt Date: 20140917
  Transmission Date: 20150326
  Serious: Yes (Hospitalization)
  Sender: FDA-Public Use
  Company Number: US-GLAXOSMITHKLINE-A1077916A

PATIENT
  Age: 80 Year
  Sex: Male
  Weight: 70 kg

DRUGS (9)
  1. CELECOXIB. [Concomitant]
     Active Substance: CELECOXIB
  2. PREGABALIN. [Concomitant]
     Active Substance: PREGABALIN
  3. MORPHINE [Concomitant]
     Active Substance: MORPHINE
  4. INDAPAMIDE. [Concomitant]
     Active Substance: INDAPAMIDE
  5. SAXAGLIPTIN [Concomitant]
     Active Substance: SAXAGLIPTIN
  6. VOTRIENT [Suspect]
     Active Substance: PAZOPANIB HYDROCHLORIDE
     Indication: CONNECTIVE TISSUE NEOPLASM
     Dosage: 800MG PER DAY
     Route: 065
     Dates: start: 201311
  7. QUINAPRIL [Concomitant]
     Active Substance: QUINAPRIL\QUINAPRIL HYDROCHLORIDE
  8. ASPIRIN. [Concomitant]
     Active Substance: ASPIRIN
  9. METFORMIN [Concomitant]
     Active Substance: METFORMIN HYDROCHLORIDE

REACTIONS (5)
  - Abdominal mass [Not Recovered/Not Resolved]
  - Ill-defined disorder [Recovering/Resolving]
  - Malignant neoplasm progression [Not Recovered/Not Resolved]
  - Burning sensation [Recovering/Resolving]
  - Walking aid user [Recovering/Resolving]
